FAERS Safety Report 6656451-8 (Version None)
Quarter: 2010Q1

REPORT INFORMATION
  Report Type: 
  Country: None (occurrence: None)
  Receive Date: 20100326
  Receipt Date: 20100326
  Transmission Date: 20100710
  Serious: No
  Sender: FDA-Public Use
  Company Number: None

PATIENT
  Age: 41 Year
  Sex: Female
  Weight: 147.8726 kg

DRUGS (1)
  1. LEVOXYL [Suspect]
     Indication: HYPOTHYROIDISM
     Dosage: .175 LIFETIME

REACTIONS (1)
  - MULTIPLE CHEMICAL SENSITIVITY [None]
